FAERS Safety Report 4327396-3 (Version None)
Quarter: 2004Q1

REPORT INFORMATION
  Report Type: 
  Country: None (occurrence: None)
  Receive Date: 20040330
  Receipt Date: 20040309
  Transmission Date: 20041129
  Serious: Yes (Hospitalization)
  Sender: FDA-Public Use
  Company Number: CA-MERCK-0403CAN00057

PATIENT
  Age: 49 Year
  Sex: Male

DRUGS (1)
  1. FOSAMAX [Suspect]
     Indication: OSTEOPOROSIS
     Route: 048
     Dates: start: 20030910, end: 20040101

REACTIONS (6)
  - APLASTIC ANAEMIA [None]
  - DRUG TOXICITY [None]
  - HYPOTHERMIA [None]
  - MYELODYSPLASTIC SYNDROME [None]
  - PARANOIA [None]
  - POISONING [None]
